FAERS Safety Report 7366800-3 (Version None)
Quarter: 2011Q1

REPORT INFORMATION
  Report Type: 
  Country: None (occurrence: None)
  Receive Date: 20110322
  Receipt Date: 20110314
  Transmission Date: 20110831
  Serious: Yes (Other)
  Sender: FDA-Public Use
  Company Number: DK-ROCHE-765269

PATIENT

DRUGS (2)
  1. TEMSIROLIMUS [Suspect]
     Indication: GLIOBLASTOMA MULTIFORME
     Dosage: ON DAY 1 AND 8
     Route: 042
  2. BEVACIZUMAB [Suspect]
     Indication: GLIOBLASTOMA MULTIFORME
     Dosage: ON DAY 8
     Route: 065

REACTIONS (6)
  - HYPERTENSION [None]
  - HYPERCHOLESTEROLAEMIA [None]
  - HYPERTRIGLYCERIDAEMIA [None]
  - HYPERGLYCAEMIA [None]
  - THROMBOCYTOPENIA [None]
  - INFECTION [None]
